FAERS Safety Report 13576118 (Version 1)
Quarter: 2017Q2

REPORT INFORMATION
  Report Type: Spontaneous
  Country: US (occurrence: US)
  Receive Date: 20170524
  Receipt Date: 20170524
  Transmission Date: 20170830
  Serious: No
  Sender: FDA-Public Use
  Company Number: US-PFIZER INC-2017223183

PATIENT
  Sex: Female

DRUGS (1)
  1. XELJANZ XR [Suspect]
     Active Substance: TOFACITINIB CITRATE
     Indication: RHEUMATOID ARTHRITIS
     Dosage: 11 MG, DAILY

REACTIONS (10)
  - Joint range of motion decreased [Unknown]
  - Inflammation [Unknown]
  - Musculoskeletal stiffness [Recovering/Resolving]
  - Synovitis [Unknown]
  - Gait disturbance [Unknown]
  - Swelling [Recovering/Resolving]
  - Arthralgia [Unknown]
  - Hand deformity [Unknown]
  - Joint crepitation [Unknown]
  - Pain [Recovering/Resolving]
